FAERS Safety Report 6349976-6 (Version None)
Quarter: 2009Q3

REPORT INFORMATION
  Report Type: 
  Country: None (occurrence: None)
  Receive Date: 20090911
  Receipt Date: 20090622
  Transmission Date: 20100115
  Serious: No
  Sender: FDA-Public Use
  Company Number: US-ABBOTT-06P-163-0346524-00

PATIENT
  Sex: Female
  Weight: 59.02 kg

DRUGS (7)
  1. HUMIRA [Suspect]
     Indication: RHEUMATOID ARTHRITIS
     Route: 058
     Dates: start: 20060101, end: 20061008
  2. HUMIRA [Suspect]
     Dosage: PEN
     Route: 058
     Dates: start: 20061008
  3. METHOTREXATE [Concomitant]
     Indication: ARTHRITIS
     Route: 048
  4. ESOMEPRAZOLE [Concomitant]
     Indication: ABDOMINAL DISCOMFORT
  5. SERTRALINE HYDROCHLORIDE [Concomitant]
     Indication: STRESS
     Route: 048
  6. YASMIN [Concomitant]
     Indication: CONTRACEPTION
     Route: 048
  7. FOLIC ACID [Concomitant]
     Indication: DRUG USE FOR UNKNOWN INDICATION
     Route: 048

REACTIONS (6)
  - INCORRECT DOSE ADMINISTERED [None]
  - INJECTION SITE ERYTHEMA [None]
  - INJECTION SITE EXTRAVASATION [None]
  - INJECTION SITE PRURITUS [None]
  - INJECTION SITE SWELLING [None]
  - WRONG TECHNIQUE IN DRUG USAGE PROCESS [None]
